FAERS Safety Report 21036975 (Version 1)
Quarter: 2022Q3

REPORT INFORMATION
  Report Type: Report from Study
  Country: US (occurrence: US)
  Receive Date: 20220702
  Receipt Date: 20220702
  Transmission Date: 20221027
  Serious: Yes (Hospitalization)
  Sender: FDA-Public Use
  Company Number: US-TEVA-2022-US-2049996

PATIENT
  Age: 51 Year
  Sex: Male
  Weight: 79.3 kg

DRUGS (5)
  1. DAUNORUBICIN [Suspect]
     Active Substance: DAUNORUBICIN
     Indication: Acute myeloid leukaemia
     Dosage: DAILY,CONTINUOUS
     Route: 041
     Dates: start: 20190215, end: 20190217
  2. DAUNORUBICIN [Suspect]
     Active Substance: DAUNORUBICIN
     Dosage: DAILY,CONTINUOUS
     Route: 041
     Dates: start: 20190306, end: 20190308
  3. GLASDEGIB [Suspect]
     Active Substance: GLASDEGIB
     Indication: Acute myeloid leukaemia
     Dosage: ONCE DAILY CONTINUOUS
     Route: 048
     Dates: start: 20190215, end: 20190409
  4. CYTARABINE [Suspect]
     Active Substance: CYTARABINE
     Indication: Acute myeloid leukaemia
     Dosage: DAILY BY CONTINUOUS INFUSION
     Route: 041
     Dates: start: 20190215, end: 20190221
  5. CYTARABINE [Suspect]
     Active Substance: CYTARABINE
     Dosage: DAILY BY CONTINUOUS INFUSION
     Route: 041
     Dates: start: 20190304, end: 20190312

REACTIONS (2)
  - Pneumonia [Recovered/Resolved with Sequelae]
  - Sepsis [Recovered/Resolved]

NARRATIVE: CASE EVENT DATE: 20190411
